FAERS Safety Report 19274023 (Version 1)
Quarter: 2021Q2

REPORT INFORMATION
  Report Type: Spontaneous
  Country: US (occurrence: US)
  Receive Date: 20210519
  Receipt Date: 20210519
  Transmission Date: 20210717
  Serious: No
  Sender: FDA-Public Use
  Company Number: None

PATIENT

DRUGS (1)
  1. GABAPENTIN. [Suspect]
     Active Substance: GABAPENTIN
     Indication: PULMONARY FIBROSIS
     Dosage: ?          QUANTITY:30 PILLS;?
     Route: 048
     Dates: start: 20210410, end: 20210411

REACTIONS (5)
  - Gait disturbance [None]
  - Somnolence [None]
  - Asthenia [None]
  - Headache [None]
  - Nausea [None]

NARRATIVE: CASE EVENT DATE: 20210411
